FAERS Safety Report 17869185 (Version 1)
Quarter: 2020Q2

REPORT INFORMATION
  Report Type: Other
  Country: IT (occurrence: IT)
  Receive Date: 20200608
  Receipt Date: 20200608
  Transmission Date: 20200714
  Serious: Yes (Hospitalization, Other)
  Sender: FDA-Public Use
  Company Number: IT-DEXPHARM-20200474

PATIENT
  Age: 74 Year
  Sex: Female

DRUGS (4)
  1. PANTOPRAZOLE [Suspect]
     Active Substance: PANTOPRAZOLE
  2. NEBIVOLOL. [Concomitant]
     Active Substance: NEBIVOLOL
  3. SIMVASTATIN. [Concomitant]
     Active Substance: SIMVASTATIN
  4. LEVETIRACETAM NON DEXCEL PRODUCT [Suspect]
     Active Substance: LEVETIRACETAM
     Indication: PARTIAL SEIZURES
     Dosage: 1500 MG/DAILY

REACTIONS (4)
  - Cerebellar ataxia [Recovered/Resolved]
  - Diarrhoea [Unknown]
  - Hypomagnesaemia [Recovered/Resolved]
  - Drug interaction [Recovered/Resolved]
